FAERS Safety Report 17101674 (Version 1)
Quarter: 2019Q4

REPORT INFORMATION
  Report Type: Spontaneous
  Country: US (occurrence: US)
  Receive Date: 20191202
  Receipt Date: 20191202
  Transmission Date: 20200122
  Serious: No
  Sender: FDA-Public Use
  Company Number: US-009507513-1911USA004377

PATIENT
  Age: 31 Year
  Sex: Female
  Weight: 89.34 kg

DRUGS (2)
  1. NEXPLANON [Suspect]
     Active Substance: ETONOGESTREL
     Indication: CONTRACEPTION
     Dosage: 1 DOSAGE FORM
     Route: 059
     Dates: start: 2016
  2. ALBUTEROL. [Concomitant]
     Active Substance: ALBUTEROL
     Indication: ASTHMA

REACTIONS (10)
  - Erythema [Unknown]
  - Abdominal discomfort [Unknown]
  - Parosmia [Unknown]
  - Amenorrhoea [Recovered/Resolved]
  - Breast mass [Not Recovered/Not Resolved]
  - Groin pain [Unknown]
  - Decreased appetite [Unknown]
  - White blood cell count increased [Unknown]
  - Abscess [Unknown]
  - Menstruation irregular [Unknown]

NARRATIVE: CASE EVENT DATE: 2016
